FAERS Safety Report 25091985 (Version 1)
Quarter: 2025Q1

REPORT INFORMATION
  Report Type: Spontaneous
  Country: CN (occurrence: CN)
  Receive Date: 20250318
  Receipt Date: 20250318
  Transmission Date: 20250409
  Serious: Yes (Hospitalization)
  Sender: BEIGENE
  Company Number: CN-BEIGENE-BGN-2025-003997

PATIENT
  Age: 62 Year
  Weight: 55 kg

DRUGS (17)
  1. TISLELIZUMAB [Suspect]
     Active Substance: TISLELIZUMAB
     Indication: Lung neoplasm malignant
  2. TISLELIZUMAB [Suspect]
     Active Substance: TISLELIZUMAB
  3. TISLELIZUMAB [Suspect]
     Active Substance: TISLELIZUMAB
     Route: 041
  4. TISLELIZUMAB [Suspect]
     Active Substance: TISLELIZUMAB
  5. TISLELIZUMAB [Suspect]
     Active Substance: TISLELIZUMAB
     Route: 041
  6. TISLELIZUMAB [Suspect]
     Active Substance: TISLELIZUMAB
  7. CISPLATIN [Suspect]
     Active Substance: CISPLATIN
     Indication: Lung neoplasm malignant
  8. CISPLATIN [Suspect]
     Active Substance: CISPLATIN
  9. CISPLATIN [Suspect]
     Active Substance: CISPLATIN
     Route: 041
  10. CISPLATIN [Suspect]
     Active Substance: CISPLATIN
  11. CISPLATIN [Suspect]
     Active Substance: CISPLATIN
  12. CISPLATIN [Suspect]
     Active Substance: CISPLATIN
     Route: 041
  13. DOCETAXEL [Suspect]
     Active Substance: DOCETAXEL
     Indication: Lung neoplasm malignant
  14. DOCETAXEL [Suspect]
     Active Substance: DOCETAXEL
     Route: 041
  15. DOCETAXEL [Suspect]
     Active Substance: DOCETAXEL
  16. SODIUM CHLORIDE [Concomitant]
     Active Substance: SODIUM CHLORIDE
     Indication: Vehicle solution use
     Route: 041
  17. SODIUM CHLORIDE [Concomitant]
     Active Substance: SODIUM CHLORIDE

REACTIONS (2)
  - Myelosuppression [Recovering/Resolving]
  - Infection [Unknown]
